FAERS Safety Report 24804761 (Version 1)
Quarter: 2025Q1

REPORT INFORMATION
  Report Type: Spontaneous
  Country: PT (occurrence: PT)
  Receive Date: 20250103
  Receipt Date: 20250103
  Transmission Date: 20250408
  Serious: Yes (Other)
  Sender: ORGANON
  Company Number: PT-ACRAF SpA-2024-036036

PATIENT
  Age: 79 Year
  Sex: Male

DRUGS (8)
  1. MIRTAZAPINE [Interacting]
     Active Substance: MIRTAZAPINE
     Indication: Product used for unknown indication
  2. MIRTAZAPINE [Interacting]
     Active Substance: MIRTAZAPINE
  3. CENOBAMATE [Interacting]
     Active Substance: CENOBAMATE
     Indication: Epilepsy
     Route: 048
     Dates: start: 20240704
  4. CENOBAMATE [Interacting]
     Active Substance: CENOBAMATE
     Route: 048
  5. LEVETIRACETAM [Concomitant]
     Active Substance: LEVETIRACETAM
     Indication: Product used for unknown indication
     Dosage: 1000 MILLIGRAM, Q12H
  6. PRADAXA [Concomitant]
     Active Substance: DABIGATRAN ETEXILATE MESYLATE
     Indication: Product used for unknown indication
  7. SILODOSIN [Concomitant]
     Active Substance: SILODOSIN
     Indication: Product used for unknown indication
  8. LACOSAMIDE [Concomitant]
     Active Substance: LACOSAMIDE
     Indication: Product used for unknown indication
     Dosage: 200 MILLIGRAM, Q12H

REACTIONS (5)
  - Drug interaction [Unknown]
  - Psychomotor retardation [Unknown]
  - Apathy [Unknown]
  - Somnolence [Unknown]
  - Seizure [Unknown]
